FAERS Safety Report 11899064 (Version 3)
Quarter: 2016Q2

REPORT INFORMATION
  Report Type: Spontaneous
  Country: NL (occurrence: FR)
  Receive Date: 20160108
  Receipt Date: 20160425
  Transmission Date: 20160815
  Serious: Yes (Life-Threatening, Hospitalization, Other)
  Sender: FDA-Public Use
  Company Number: NL-PFIZER INC-2016004519

PATIENT
  Age: 67 Year
  Sex: Female
  Weight: 60 kg

DRUGS (7)
  1. PANADOL [Concomitant]
     Active Substance: ACETAMINOPHEN
     Dosage: 500 MG, 2X/WEEK
     Route: 048
     Dates: start: 20100101
  2. OXYCODON [Interacting]
     Active Substance: OXYCODONE
     Indication: BACK PAIN
     Dosage: 5 MG/ 3X/DAY
     Route: 048
     Dates: start: 20150501, end: 20150930
  3. FELODIPINE. [Concomitant]
     Active Substance: FELODIPINE
     Indication: HYPERTENSION
     Dosage: 5 MG, UNK
     Dates: start: 2005
  4. OXYCODON [Interacting]
     Active Substance: OXYCODONE
     Dosage: 10 MG, 2X/DAY
     Dates: start: 20150501, end: 20150930
  5. CANDESARTAN CILEXETIL. [Concomitant]
     Active Substance: CANDESARTAN CILEXETIL
     Indication: HYPERTENSION
     Dosage: 16 MG, UNK
     Dates: start: 2005
  6. LYRICA [Suspect]
     Active Substance: PREGABALIN
     Indication: BACK PAIN
     Dosage: 75 MG, 1X/DAY
     Route: 048
     Dates: start: 20150804
  7. METOPROLOL SUCCINAT TAD [Concomitant]
     Indication: HYPERTENSION
     Dosage: 100 MG, UNK
     Dates: start: 2005

REACTIONS (12)
  - Hepatic failure [Unknown]
  - Agitation [Unknown]
  - Coma [Recovered/Resolved]
  - Dermo-hypodermitis [Unknown]
  - Pneumonia [Unknown]
  - Sedation [Unknown]
  - Cardiac arrest [Recovered/Resolved]
  - Cell death [Unknown]
  - Acute kidney injury [Unknown]
  - Withdrawal syndrome [Unknown]
  - Drug interaction [Recovered/Resolved]
  - Hepatitis [Unknown]

NARRATIVE: CASE EVENT DATE: 20150930
